FAERS Safety Report 23572935 (Version 2)
Quarter: 2024Q2

REPORT INFORMATION
  Report Type: Report from Study
  Country: US (occurrence: US)
  Receive Date: 20240227
  Receipt Date: 20240402
  Transmission Date: 20240715
  Serious: Yes (Other)
  Sender: FDA-Public Use
  Company Number: US-ALLERGAN-2240616US

PATIENT
  Sex: Female
  Weight: 63 kg

DRUGS (3)
  1. LUMIGAN [Suspect]
     Active Substance: BIMATOPROST
     Indication: Glaucoma
     Dosage: DAILY DOSE: 2.0 GTT, FREQUENCY TEXT: ONCE DAILY AT NIGHT TIME; ONE DROP IN EACH EYE?FORM STRENGTH...
     Route: 047
     Dates: start: 2019
  2. DORZOLAMIDE HYDROCHLORIDE [Concomitant]
     Active Substance: DORZOLAMIDE HYDROCHLORIDE
     Indication: Glaucoma
  3. OASIS TEARS [Concomitant]
     Active Substance: GLYCERIN
     Indication: Dry eye
     Dosage: PLUS PF

REACTIONS (10)
  - Deafness [Not Recovered/Not Resolved]
  - SARS-CoV-2 test positive [Recovering/Resolving]
  - Asthenia [Not Recovered/Not Resolved]
  - Cough [Recovering/Resolving]
  - Gait disturbance [Not Recovered/Not Resolved]
  - Weight decreased [Recovered/Resolved]
  - Disease recurrence [Unknown]
  - Surgery [Unknown]
  - SARS-CoV-2 test positive [Recovered/Resolved]
  - Bronchitis [Not Recovered/Not Resolved]

NARRATIVE: CASE EVENT DATE: 20210101
